FAERS Safety Report 24116332 (Version 1)
Quarter: 2024Q3

REPORT INFORMATION
  Report Type: Spontaneous
  Country: FR (occurrence: FR)
  Receive Date: 20240722
  Receipt Date: 20240722
  Transmission Date: 20241016
  Serious: Yes (Death)
  Sender: NOVO NORDISK
  Company Number: FR-NOVOPROD-1257628

PATIENT
  Age: 64 Year
  Sex: Male

DRUGS (1)
  1. NOVORAPID [Suspect]
     Active Substance: INSULIN ASPART
     Indication: Diabetes mellitus
     Dosage: 4 PENS

REACTIONS (2)
  - Completed suicide [Fatal]
  - Extra dose administered [Fatal]
